FAERS Safety Report 8444481-5 (Version None)
Quarter: 2012Q2

REPORT INFORMATION
  Report Type: 
  Country: None (occurrence: None)
  Receive Date: 20120618
  Receipt Date: 20120606
  Transmission Date: 20120825
  Serious: Yes (Hospitalization)
  Sender: FDA-Public Use
  Company Number: US-PFIZER INC-2011125392

PATIENT
  Sex: Female
  Weight: 86.4 kg

DRUGS (1)
  1. CRIZOTINIB [Suspect]
     Indication: NON-SMALL CELL LUNG CANCER
     Dosage: 250 MG, 2X/DAY
     Route: 048
     Dates: start: 20110511

REACTIONS (8)
  - OEDEMA PERIPHERAL [None]
  - DYSPNOEA EXERTIONAL [None]
  - DYSPNOEA [None]
  - DEEP VEIN THROMBOSIS [None]
  - FATIGUE [None]
  - SWELLING FACE [None]
  - PULMONARY EMBOLISM [None]
  - DIASTOLIC DYSFUNCTION [None]
